FAERS Safety Report 23323884 (Version 1)
Quarter: 2023Q4

REPORT INFORMATION
  Report Type: Other
  Country: CA (occurrence: CA)
  Receive Date: 20231221
  Receipt Date: 20231221
  Transmission Date: 20240109
  Serious: Yes (Other)
  Sender: FDA-Public Use
  Company Number: CA-ANVISA-BBL2023001279

PATIENT
  Age: 72 Year
  Sex: Female

DRUGS (1)
  1. BEVACIZUMAB [Suspect]
     Active Substance: BEVACIZUMAB
     Indication: Neovascular age-related macular degeneration
     Dosage: UNK (1 EVERY 4 WEEKS)
     Route: 065

REACTIONS (4)
  - Eye haemorrhage [Unknown]
  - Eye pain [Unknown]
  - Eye disorder [Unknown]
  - Off label use [Unknown]
